FAERS Safety Report 8011170-0 (Version None)
Quarter: 2011Q4

REPORT INFORMATION
  Report Type: 
  Country: None (occurrence: None)
  Receive Date: 20111228
  Receipt Date: 20111214
  Transmission Date: 20120403
  Serious: Yes (Other)
  Sender: FDA-Public Use
  Company Number: IL-WATSON-2011-21723

PATIENT
  Age: 58 Year
  Sex: Male

DRUGS (2)
  1. RISPERIDONE [Suspect]
     Indication: SCHIZOPHRENIA
  2. SERTINDOLE [Suspect]
     Indication: SCHIZOPHRENIA
     Dosage: 4 MG, DAILY

REACTIONS (1)
  - PLEUROTHOTONUS [None]
